FAERS Safety Report 7570671 (Version 3)
Quarter: 2013Q2

REPORT INFORMATION
  Report Type: Report from Study
  Country: MX (occurrence: MX)
  Receive Date: 20100902
  Receipt Date: 20130604
  Transmission Date: 20140414
  Serious: Yes (Death, Hospitalization, Other)
  Sender: FDA-Public Use
  Company Number: PHHY2010MX57146

PATIENT
  Age: 52 Year
  Sex: Male

DRUGS (1)
  1. CO-DIOVAN [Suspect]
     Indication: HYPERTENSION
     Dosage: 1 DF (160MG VALS/ 25MG HYDR ), DAILY
     Route: 048

REACTIONS (6)
  - Vascular rupture [Fatal]
  - Aortic rupture [Fatal]
  - Cardio-respiratory arrest [Fatal]
  - Pulmonary oedema [Fatal]
  - Blood pressure increased [Unknown]
  - Back pain [Unknown]
